FAERS Safety Report 20451854 (Version 4)
Quarter: 2022Q4

REPORT INFORMATION
  Report Type: Spontaneous
  Country: CZ (occurrence: CZ)
  Receive Date: 20220209
  Receipt Date: 20221226
  Transmission Date: 20230112
  Serious: Yes (Life-Threatening, Hospitalization, Other)
  Sender: FDA-Public Use
  Company Number: None

PATIENT
  Age: 90 Year
  Sex: Female

DRUGS (2)
  1. METHOTREXATE [Suspect]
     Active Substance: METHOTREXATE
     Indication: Rheumatoid arthritis
     Dosage: 10 MG, QW
     Route: 065
     Dates: start: 20211207, end: 20211224
  2. RIVAROXABAN [Concomitant]
     Active Substance: RIVAROXABAN
     Indication: Atrial fibrillation
     Dosage: UNK
     Route: 065

REACTIONS (13)
  - Pancytopenia [Recovered/Resolved]
  - Myelosuppression [Recovered/Resolved]
  - Vasculitis [Recovered/Resolved]
  - Rash [Recovered/Resolved]
  - Oral pain [Recovering/Resolving]
  - Blood urea increased [Recovering/Resolving]
  - Inflammatory marker increased [Recovering/Resolving]
  - Oropharyngeal pain [Recovering/Resolving]
  - Coagulopathy [Recovering/Resolving]
  - Oropharyngeal candidiasis [Recovered/Resolved]
  - Sepsis [Unknown]
  - Inappropriate schedule of product administration [Unknown]
  - Product administration error [Unknown]

NARRATIVE: CASE EVENT DATE: 20211207
